FAERS Safety Report 7327111-5 (Version None)
Quarter: 2011Q1

REPORT INFORMATION
  Report Type: 
  Country: None (occurrence: None)
  Receive Date: 20110302
  Receipt Date: 20110225
  Transmission Date: 20110831
  Serious: Yes (Death, Hospitalization, Disabling)
  Sender: FDA-Public Use
  Company Number: US-ASTRAZENECA-2010SE10435

PATIENT
  Age: 742 Month
  Sex: Female

DRUGS (1)
  1. ARIMIDEX [Suspect]
     Indication: BREAST CANCER
     Route: 048

REACTIONS (7)
  - DEATH [None]
  - SURGERY [None]
  - MALAISE [None]
  - METASTASES TO BONE [None]
  - STAPHYLOCOCCAL INFECTION [None]
  - MYALGIA [None]
  - PAIN MANAGEMENT [None]
